FAERS Safety Report 11766084 (Version 3)
Quarter: 2016Q1

REPORT INFORMATION
  Report Type: Spontaneous
  Country: US (occurrence: US)
  Receive Date: 20151122
  Receipt Date: 20160121
  Transmission Date: 20160525
  Serious: Yes (Other)
  Sender: FDA-Public Use
  Company Number: US-AMGEN-USASP2015122652

PATIENT
  Age: 57 Year
  Sex: Male
  Weight: 102.4 kg

DRUGS (9)
  1. PROCRIT [Suspect]
     Active Substance: ERYTHROPOIETIN
     Dosage: 10000 UNIT, 3 TIMES/WK
     Route: 065
     Dates: start: 201505, end: 201506
  2. ARANESP [Suspect]
     Active Substance: DARBEPOETIN ALFA
     Indication: PRODUCT USED FOR UNKNOWN INDICATION
     Dosage: 200 MCG, WEEKLY
     Route: 042
     Dates: start: 20150820, end: 20150910
  3. PROCRIT [Suspect]
     Active Substance: ERYTHROPOIETIN
     Indication: NEPHROGENIC ANAEMIA
     Dosage: 12500 UNIT, 3 TIMES/WK
     Route: 042
     Dates: start: 201306
  4. PROCRIT [Suspect]
     Active Substance: ERYTHROPOIETIN
     Dosage: 9000 UNIT, 3 TIMES/WK
     Route: 065
     Dates: start: 201411, end: 201505
  5. PROCRIT [Suspect]
     Active Substance: ERYTHROPOIETIN
     Dosage: 14000 UNIT, 3 TIMES/WK
     Route: 065
     Dates: start: 201506, end: 201506
  6. PROCRIT [Suspect]
     Active Substance: ERYTHROPOIETIN
     Dosage: 20000 UNIT, 3 TIMES/WK
     Route: 042
     Dates: start: 20150910
  7. PROCRIT [Suspect]
     Active Substance: ERYTHROPOIETIN
     Dosage: 12500 UNIT, 3 TIMES/WK
     Route: 065
     Dates: start: 201507, end: 2015
  8. PROCRIT [Suspect]
     Active Substance: ERYTHROPOIETIN
     Dosage: 20000 UNIT, 3 TIMES/WK
     Route: 065
     Dates: start: 201509
  9. PROCRIT [Suspect]
     Active Substance: ERYTHROPOIETIN
     Dosage: 19500 UNIT, 3 TIMES/WK
     Route: 065
     Dates: start: 2015, end: 201508

REACTIONS (7)
  - Bone marrow failure [Unknown]
  - Erythropoiesis abnormal [Unknown]
  - Aplasia pure red cell [Unknown]
  - Eosinophil count increased [Unknown]
  - Drug effect decreased [Unknown]
  - Adverse event [Unknown]
  - Haemoglobin decreased [Not Recovered/Not Resolved]

NARRATIVE: CASE EVENT DATE: 201504
